FAERS Safety Report 20256321 (Version 1)
Quarter: 2021Q4

REPORT INFORMATION
  Report Type: Spontaneous
  Country: US (occurrence: US)
  Receive Date: 20211230
  Receipt Date: 20211230
  Transmission Date: 20220303
  Serious: No
  Sender: FDA-Public Use
  Company Number: US-CELGENE-USA-20211208130

PATIENT
  Age: 73 Year
  Sex: Female
  Weight: 77.180 kg

DRUGS (1)
  1. REVLIMID [Suspect]
     Active Substance: LENALIDOMIDE
     Indication: Myelodysplastic syndrome
     Dosage: 10 MILLIGRAM
     Route: 048
     Dates: start: 20211213

REACTIONS (2)
  - Migraine [Unknown]
  - Visual impairment [Unknown]

NARRATIVE: CASE EVENT DATE: 20211222
